FAERS Safety Report 8504561-2 (Version None)
Quarter: 2012Q3

REPORT INFORMATION
  Report Type: 
  Country: None (occurrence: None)
  Receive Date: 20120711
  Receipt Date: 20120702
  Transmission Date: 20120928
  Serious: Yes (Other)
  Sender: FDA-Public Use
  Company Number: US-ABBOTT-12P-163-0952349-00

PATIENT
  Age: 42 Year
  Sex: Female

DRUGS (13)
  1. LASIX [Concomitant]
     Indication: CARDIAC DISORDER
  2. ABILIFY [Concomitant]
     Indication: PRODUCT USED FOR UNKNOWN INDICATION
  3. PAXIL [Concomitant]
     Indication: DEPRESSION
  4. KLONOPIN [Concomitant]
     Indication: DEPRESSION
  5. SEROQUEL [Concomitant]
     Indication: PRODUCT USED FOR UNKNOWN INDICATION
     Dosage: TWICE DAILY
  6. LOPRESSOR [Concomitant]
     Indication: HEART RATE INCREASED
  7. LOPRESSOR [Concomitant]
     Indication: CARDIAC DISORDER
  8. LANTUS [Concomitant]
     Indication: DIABETES MELLITUS
     Dosage: AT NIGHT
  9. METFORMIN HCL [Concomitant]
     Indication: DIABETES MELLITUS
     Dosage: TWICE DAILY
  10. HUMIRA [Suspect]
     Indication: CROHN'S DISEASE
     Dates: start: 20111228
  11. LEXAPRO [Concomitant]
     Indication: DEPRESSION
  12. ATIVAN [Concomitant]
     Indication: ANXIETY
  13. KLONOPIN [Concomitant]
     Indication: ANXIETY

REACTIONS (6)
  - PAIN IN EXTREMITY [None]
  - INTERVERTEBRAL DISC PROTRUSION [None]
  - BACK PAIN [None]
  - COAGULOPATHY [None]
  - PROCEDURAL COMPLICATION [None]
  - PARAPLEGIA [None]
